FAERS Safety Report 9602388 (Version 1)
Quarter: 2013Q4

REPORT INFORMATION
  Report Type: Spontaneous
  Country: US (occurrence: US)
  Receive Date: 20131007
  Receipt Date: 20131007
  Transmission Date: 20140711
  Serious: No
  Sender: FDA-Public Use
  Company Number: US-GLAXOSMITHKLINE-A1039231A

PATIENT
  Age: 30 Year
  Sex: Female

DRUGS (2)
  1. BENLYSTA [Suspect]
     Indication: SYSTEMIC LUPUS ERYTHEMATOSUS
     Dosage: 120MG CYCLIC
     Route: 042
     Dates: start: 20130322
  2. UNKNOWN MEDICATION [Suspect]
     Indication: FIBROMYALGIA
     Route: 042

REACTIONS (2)
  - Fibromyalgia [Unknown]
  - Somnolence [Unknown]
